FAERS Safety Report 15341251 (Version 2)
Quarter: 2018Q3

REPORT INFORMATION
  Report Type: Report from Study
  Country: ZA (occurrence: ZA)
  Receive Date: 20180831
  Receipt Date: 20180925
  Transmission Date: 20181010
  Serious: Yes (Death, Hospitalization)
  Sender: FDA-Public Use
  Company Number: PHHY2018ZA084330

PATIENT
  Sex: Female

DRUGS (2)
  1. TAFINLAR [Suspect]
     Active Substance: DABRAFENIB MESYLATE
     Indication: MALIGNANT MELANOMA
     Dosage: 150 MG, BID
     Route: 048
     Dates: start: 20160303, end: 20171122
  2. TRAMETINIB [Suspect]
     Active Substance: TRAMETINIB
     Indication: MALIGNANT MELANOMA
     Dosage: 2 MG, QD
     Route: 048
     Dates: start: 20160330, end: 20171122

REACTIONS (7)
  - Malignant melanoma [Fatal]
  - Metastases to central nervous system [Fatal]
  - Blood glucose increased [Unknown]
  - Metastases to lung [Fatal]
  - Respiratory distress [Fatal]
  - Malignant neoplasm progression [Fatal]
  - Metastases to liver [Fatal]

NARRATIVE: CASE EVENT DATE: 20171122
